FAERS Safety Report 19908859 (Version 2)
Quarter: 2022Q1

REPORT INFORMATION
  Report Type: Report from Study
  Country: NL (occurrence: None)
  Receive Date: 20211002
  Receipt Date: 20220113
  Transmission Date: 20220423
  Serious: Yes (Hospitalization)
  Sender: FDA-Public Use
  Company Number: NL-ROCHE-2924447

PATIENT
  Age: 53 Year
  Sex: Female

DRUGS (25)
  1. ATEZOLIZUMAB [Suspect]
     Active Substance: ATEZOLIZUMAB
     Indication: Triple negative breast cancer
     Dosage: DATE OF MOST RECENT DOSE OF CARBOPLATIN PRIOR TO AE AND SAE ONSET: 13/SEP/2021
     Route: 042
     Dates: start: 20210913
  2. CARBOPLATIN [Suspect]
     Active Substance: CARBOPLATIN
     Indication: Triple negative breast cancer
     Dosage: DATE OF MOST RECENT DOSE OF CARBOPLATIN PRIOR TO AE AND SAE ONSET: 13/SEP/2021
     Route: 042
     Dates: start: 20210913
  3. CYCLOPHOSPHAMIDE [Suspect]
     Active Substance: CYCLOPHOSPHAMIDE
     Indication: Triple negative breast cancer
     Dosage: DATE OF MOST RECENT DOSE OF CYCLOPHOSPHAMIDE PRIOR TO AE AND SAE ONSET: 13/SEP/2021
     Route: 042
     Dates: start: 20210913
  4. OMEPRAZOLE [Concomitant]
     Active Substance: OMEPRAZOLE
     Route: 048
     Dates: start: 20210906
  5. POLYETHYLENE GLYCOLS [Concomitant]
     Active Substance: POLYETHYLENE GLYCOLS
     Route: 048
     Dates: start: 20210906
  6. METFORMIN [Concomitant]
     Active Substance: METFORMIN HYDROCHLORIDE
     Dates: start: 20210906
  7. METFORMIN [Concomitant]
     Active Substance: METFORMIN HYDROCHLORIDE
     Route: 048
     Dates: start: 20210702, end: 20210702
  8. ASCORBIC [Concomitant]
     Route: 048
     Dates: start: 20210906
  9. APIXABAN [Concomitant]
     Active Substance: APIXABAN
     Route: 048
     Dates: start: 20210906
  10. MICONAZOLE NITRATE [Concomitant]
     Active Substance: MICONAZOLE NITRATE
     Route: 003
     Dates: start: 20210906
  11. CARBOMER [Concomitant]
     Active Substance: CARBOMER
     Dosage: GEL 2 MG/G TUBE 10 G
     Dates: start: 20210906
  12. DEXTRAN [Concomitant]
     Active Substance: DEXTRAN
     Dosage: DROPS 1/3 MG/ML 15 ML BOTTLE
     Route: 047
     Dates: start: 20210906
  13. MAGNESIUM HYDROXIDE [Concomitant]
     Active Substance: MAGNESIUM HYDROXIDE
     Route: 048
  14. MAGNESIUM HYDROXIDE [Concomitant]
     Active Substance: MAGNESIUM HYDROXIDE
     Route: 048
     Dates: start: 20200526, end: 20210702
  15. METOCLOPRAMIDE [Concomitant]
     Active Substance: METOCLOPRAMIDE
     Route: 048
  16. METOCLOPRAMIDE [Concomitant]
     Active Substance: METOCLOPRAMIDE
     Dosage: 10 MG/100 ML
     Route: 042
     Dates: start: 20210803, end: 20210819
  17. METOCLOPRAMIDE [Concomitant]
     Active Substance: METOCLOPRAMIDE
     Dosage: 10 MG/100 ML
     Route: 048
     Dates: start: 20210714, end: 20210722
  18. ONDANSETRON [Concomitant]
     Active Substance: ONDANSETRON
     Dosage: 8 MILLIGRAMS 15 MIN BEFORE ADMINISTRATION OF CYTOSTATICS
     Route: 042
  19. ONDANSETRON [Concomitant]
     Active Substance: ONDANSETRON
     Dosage: ANTI-EMETICS BOX 2; DOSE?ACCORDING TO SFVG SCHEDULE
     Route: 048
  20. CHOLECALCIFEROL [Concomitant]
     Active Substance: CHOLECALCIFEROL
     Dosage: 25,000 IU/ML?30/SEP/2021
     Route: 048
     Dates: start: 20210831, end: 20210906
  21. CHOLECALCIFEROL [Concomitant]
     Active Substance: CHOLECALCIFEROL
     Route: 048
     Dates: start: 20210702, end: 20210710
  22. OXAZEPAM [Concomitant]
     Active Substance: OXAZEPAM
     Dosage: ANTI-EMETICS BOX 2; DOSE?ACCORDING TO SFVG SCHEDULE
     Route: 048
  23. ESOMEPRAZOLE [Concomitant]
     Active Substance: ESOMEPRAZOLE
     Route: 048
     Dates: start: 20200526, end: 20210629
  24. INSULIN ASPART [Concomitant]
     Active Substance: INSULIN ASPART
     Dosage: 0.01 IU/HOUR
     Route: 042
     Dates: start: 20210728, end: 20210803
  25. INSULIN ASPART [Concomitant]
     Active Substance: INSULIN ASPART
     Route: 058
     Dates: start: 20210712, end: 20210728

REACTIONS (1)
  - Pancytopenia [Recovered/Resolved]

NARRATIVE: CASE EVENT DATE: 20210927
